FAERS Safety Report 4681576-6 (Version None)
Quarter: 2005Q2

REPORT INFORMATION
  Report Type: 
  Country: None (occurrence: None)
  Receive Date: 20050602
  Receipt Date: 20050513
  Transmission Date: 20051028
  Serious: Yes (Other)
  Sender: FDA-Public Use
  Company Number: USA050393303

PATIENT
  Age: 70 Year
  Sex: Female

DRUGS (7)
  1. CYMBALTA [Suspect]
     Indication: NEUROPATHY
     Dosage: 60 MG
     Dates: start: 20051001, end: 20050307
  2. AMBIEN [Concomitant]
  3. NORVASC [Concomitant]
  4. ACETYLSALICYLIC ACID SRT [Concomitant]
  5. BENICAR [Concomitant]
  6. PREVACID [Concomitant]
  7. NEURONTIN [Concomitant]

REACTIONS (2)
  - ALANINE AMINOTRANSFERASE INCREASED [None]
  - ASPARTATE AMINOTRANSFERASE INCREASED [None]
